FAERS Safety Report 5904400-X (Version None)
Quarter: 2008Q4

REPORT INFORMATION
  Report Type: 
  Country: None (occurrence: None)
  Receive Date: 20081001
  Receipt Date: 20080926
  Transmission Date: 20090506
  Serious: Yes (Hospitalization)
  Sender: FDA-Public Use
  Company Number: FR-BRISTOL-MYERS SQUIBB COMPANY-14352843

PATIENT
  Age: 71 Year
  Sex: Female

DRUGS (10)
  1. GLUCOPHAGE [Suspect]
     Dosage: STRENGTH OF THE DRUG WAS 850 MG.
     Route: 048
     Dates: end: 20080411
  2. IRBESARTAN [Suspect]
     Dosage: STRENGTH OF THE DRUG WAS 150 MG.
     Route: 048
     Dates: start: 20070101, end: 20080411
  3. NOVONORM [Concomitant]
  4. SINGULAIR [Concomitant]
  5. VENTOLIN [Concomitant]
  6. ALLOPURINOL [Concomitant]
  7. TAHOR [Concomitant]
  8. PROPOXYPHENE HCL AND ACETAMINOPHEN [Concomitant]
  9. LEXOMIL [Concomitant]
  10. DAFLON [Concomitant]

REACTIONS (1)
  - LACTIC ACIDOSIS [None]
